FAERS Safety Report 4984556-6 (Version None)
Quarter: 2006Q2

REPORT INFORMATION
  Report Type: 
  Country: None (occurrence: None)
  Receive Date: 20060421
  Receipt Date: 20060411
  Transmission Date: 20061013
  Serious: No
  Sender: FDA-Public Use
  Company Number: 06H-124-0307498-00

PATIENT
  Sex: Female

DRUGS (3)
  1. MAGNESIUM SULFATE [Suspect]
     Indication: ECLAMPSIA
     Dosage: SEE IMAGE
     Route: 042
  2. NITROGLYCERIN [Concomitant]
  3. NIFEDIPINE [Concomitant]

REACTIONS (2)
  - DRUG EXPOSURE DURING PREGNANCY [None]
  - URINE OUTPUT DECREASED [None]
